FAERS Safety Report 9519667 (Version 1)
Quarter: 2013Q1

REPORT INFORMATION
  Report Type: Spontaneous
  Country: US (occurrence: None)
  Receive Date: 20130305
  Receipt Date: 20130305
  Transmission Date: 20140127
  Serious: Yes (Other)
  Sender: FDA-Public Use
  Company Number: 163-21880-12123230

PATIENT
  Age: 81 Year
  Sex: Male
  Weight: 61.7 kg

DRUGS (1)
  1. REVLIMID (LENALIDOMIDE) (25 MILLIGRAM, CAPSULES) [Suspect]
     Indication: PLASMA CELL MYELOMA
     Dosage: 25 MG, 21 IN 21 D, PO
     Route: 048
     Dates: start: 20121004

REACTIONS (4)
  - Eye haemorrhage [None]
  - Neuropathy peripheral [None]
  - Constipation [None]
  - Sneezing [None]
